FAERS Safety Report 21092958 (Version 1)
Quarter: 2022Q3

REPORT INFORMATION
  Report Type: Spontaneous
  Country: NL (occurrence: NL)
  Receive Date: 20220718
  Receipt Date: 20220718
  Transmission Date: 20221027
  Serious: Yes (Other)
  Sender: FDA-Public Use
  Company Number: None

PATIENT
  Sex: Female
  Weight: 63 kg

DRUGS (5)
  1. DOXORUBICIN [Suspect]
     Active Substance: DOXORUBICIN
     Indication: Chemotherapy
     Dosage: 100 MG 1 X PER 2 WEEKS IV IN COMBINATION WITH CYCLOPHOSPHAMIDE, DOXORUBICIN INJECTION/INFUSION / DOX
     Route: 042
     Dates: start: 202112
  2. CYCLOPHOSPHAMIDE [Suspect]
     Active Substance: CYCLOPHOSPHAMIDE
     Indication: Chemotherapy
     Dosage: 1,000 MG 1 X PER 2 WEEKS INTRAVENOUS, CYCLOFOSPHAMIDE INJECTION/INFUSION / CYCLOFOSPHAMIDE FOR INJEC
     Route: 042
     Dates: start: 202112, end: 20220203
  3. GRANISETRON SANDOZ [Concomitant]
     Indication: Product used for unknown indication
     Dosage: TABLET, 2 MG (MILLIGRAM), GRANISETRON 2 MG TABLET / GRANISETRON SANDOZ 2 MG FILM-COATED TABLET
     Route: 065
  4. DEXAMETHASONE [Concomitant]
     Active Substance: DEXAMETHASONE
     Indication: Product used for unknown indication
     Dosage: TABLET, 4 MG (MILLIGRAM), DEXAMETHASONE 4 MG TABLETIDEXAMETHASONE TEVA 4 MG TABLET
     Route: 065
  5. EMEND [Concomitant]
     Active Substance: APREPITANT
     Indication: Product used for unknown indication
     Dosage: CAPSULE, 125+80 MG (MILLIGRAMS), APREPITANT CAPSULE 125+80 MG (COMBI PACKAGING) / EMEND CAPSULE
     Route: 065

REACTIONS (1)
  - Deafness neurosensory [Not Recovered/Not Resolved]
